FAERS Safety Report 7362978-6 (Version None)
Quarter: 2011Q1

REPORT INFORMATION
  Report Type: 
  Country: None (occurrence: None)
  Receive Date: 20110321
  Receipt Date: 20110310
  Transmission Date: 20110831
  Serious: No
  Sender: FDA-Public Use
  Company Number: US-BIOGENIDEC-2011BI009401

PATIENT
  Age: 57 Year
  Sex: Female

DRUGS (5)
  1. AVONEX [Suspect]
     Indication: MULTIPLE SCLEROSIS
     Route: 030
     Dates: start: 20050707, end: 20110201
  2. GLIPIZIDE [Concomitant]
     Indication: DIABETES MELLITUS
  3. BACLOFEN [Concomitant]
     Indication: MUSCLE SPASMS
  4. METFORMIN [Concomitant]
     Indication: DIABETES MELLITUS
  5. LANTUS [Concomitant]
     Indication: DIABETES MELLITUS

REACTIONS (8)
  - PAIN [None]
  - FATIGUE [None]
  - MULTIPLE SCLEROSIS [None]
  - VERTIGO [None]
  - DEPRESSED MOOD [None]
  - MUSCLE SPASMS [None]
  - AGEUSIA [None]
  - PAIN IN EXTREMITY [None]
